FAERS Safety Report 10236376 (Version 1)
Quarter: 2014Q1

REPORT INFORMATION
  Report Type: Spontaneous
  Country: US (occurrence: None)
  Receive Date: 20140306
  Receipt Date: 20140306
  Transmission Date: 20141002
  Serious: Yes (Other)
  Sender: FDA-Public Use
  Company Number: 163-21880-13014995

PATIENT
  Age: 79 Year
  Sex: Male

DRUGS (5)
  1. REVLIMID (LENALIDOMIDE) (CAPSULES) [Suspect]
     Indication: PLASMA CELL MYELOMA
     Route: 048
     Dates: start: 20110218
  2. AMLODIPINE BESYLATE (AMLODIPINE BESILATE) (UNKNOWN) [Concomitant]
  3. DIOVAN HTC (CO-DIOVAN) (UNKNOWN) [Concomitant]
  4. LOVASTATIN (LOVASTATIN) (UNKNOWN) [Concomitant]
  5. MULTIVITAMINS (MULTIVITAMINS) (UNKNOWN) [Concomitant]

REACTIONS (3)
  - Toxicity to various agents [None]
  - Full blood count decreased [None]
  - Fatigue [None]
